FAERS Safety Report 8916683 (Version 1)
Quarter: 2012Q4

REPORT INFORMATION
  Report Type: 
  Country: US (occurrence: US)
  Receive Date: 20121120
  Receipt Date: 20121120
  Transmission Date: 20130627
  Serious: No
  Sender: FDA-Public Use
  Company Number: US-009507513-1210USA000392

PATIENT
  Age: 54 None
  Sex: Male
  Weight: 49.43 kg

DRUGS (3)
  1. PEGINTRON [Suspect]
     Indication: HEPATITIS C
     Dosage: 0.5 ml, qw, dosage form 80 MCG,1.5ml
     Route: 058
     Dates: start: 20120806
  2. REBETOL [Suspect]
     Indication: HEPATITIS C
     Dosage: UNK
     Dates: start: 20120806
  3. TELAPREVIR [Suspect]
     Indication: HEPATITIS C
     Dosage: UNK
     Dates: start: 20120806

REACTIONS (5)
  - Drug dose omission [Unknown]
  - Incorrect dose administered [Unknown]
  - Product quality issue [Unknown]
  - Product quality issue [Unknown]
  - Product quality issue [Unknown]
